FAERS Safety Report 12383805 (Version 2)
Quarter: 2017Q1

REPORT INFORMATION
  Report Type: Spontaneous
  Country: IT (occurrence: IT)
  Receive Date: 20160519
  Receipt Date: 20170131
  Transmission Date: 20170428
  Serious: Yes (Hospitalization, Other)
  Sender: FDA-Public Use
  Company Number: IT-GLENMARK PHARMACEUTICALS INC, USA.-2016GMK022903

PATIENT
  Age: 12 Year
  Sex: Female

DRUGS (1)
  1. MONTELUKAST SODIUM. [Suspect]
     Active Substance: MONTELUKAST SODIUM
     Indication: ASTHMA
     Dosage: 5 MG, QD
     Route: 048

REACTIONS (2)
  - Metamorphopsia [Recovered/Resolved]
  - Product use issue [Unknown]
